FAERS Safety Report 7001635-2 (Version None)
Quarter: 2010Q3

REPORT INFORMATION
  Report Type: 
  Country: None (occurrence: None)
  Receive Date: 20100916
  Receipt Date: 20100902
  Transmission Date: 20110219
  Serious: Yes (Other)
  Sender: FDA-Public Use
  Company Number: 2010SP002492

PATIENT
  Age: 71 Year
  Sex: Female

DRUGS (6)
  1. ALVESCO [Suspect]
     Indication: CHRONIC OBSTRUCTIVE PULMONARY DISEASE
     Dosage: 160 UG; QD; INHALATION
     Route: 055
     Dates: start: 20090701
  2. SPIRIVA [Concomitant]
  3. CALCIUM CHANNEL [Concomitant]
  4. BLOCKERS [Concomitant]
  5. PROVENTIL HFA /00139501/ [Concomitant]
  6. PREV MEDS [Concomitant]

REACTIONS (5)
  - AORTIC ANEURYSM [None]
  - BREAST CANCER [None]
  - CONTUSION [None]
  - EAR INFECTION [None]
  - EXCORIATION [None]
